FAERS Safety Report 7070715-8 (Version None)
Quarter: 2010Q4

REPORT INFORMATION
  Report Type: 
  Country: None (occurrence: None)
  Receive Date: 20101029
  Receipt Date: 20101019
  Transmission Date: 20110411
  Serious: Yes (Hospitalization)
  Sender: FDA-Public Use
  Company Number: US-JNJFOC-20101006695

PATIENT
  Age: 44 Year
  Sex: Female

DRUGS (4)
  1. OXYCODONE HCL AND ACETAMINOPHEN [Suspect]
     Indication: PRODUCT USED FOR UNKNOWN INDICATION
     Route: 065
  2. VERAPAMIL [Suspect]
     Indication: PRODUCT USED FOR UNKNOWN INDICATION
     Route: 065
  3. CLONAZEPAM [Suspect]
     Indication: PRODUCT USED FOR UNKNOWN INDICATION
     Route: 065
  4. ETHANOL [Suspect]
     Indication: PRODUCT USED FOR UNKNOWN INDICATION
     Route: 065

REACTIONS (12)
  - BLOOD PRESSURE DECREASED [None]
  - BODY TEMPERATURE DECREASED [None]
  - DEPRESSION [None]
  - HYPERGLYCAEMIA [None]
  - HYPOGLYCAEMIA [None]
  - LIPASE INCREASED [None]
  - MYDRIASIS [None]
  - OVERDOSE [None]
  - PUPILLARY REFLEX IMPAIRED [None]
  - RESPIRATORY RATE INCREASED [None]
  - SOMNOLENCE [None]
  - WHITE BLOOD CELL COUNT INCREASED [None]
